FAERS Safety Report 8042746-2 (Version None)
Quarter: 2011Q4

REPORT INFORMATION
  Report Type: 
  Country: None (occurrence: None)
  Receive Date: 20111202
  Receipt Date: 20090902
  Transmission Date: 20120403
  Serious: Yes (Hospitalization, Disabling, Other)
  Sender: FDA-Public Use
  Company Number: 2008-188635-NL

PATIENT
  Age: 33 Year
  Sex: Female
  Weight: 63.5036 kg

DRUGS (9)
  1. NUVARING [Suspect]
     Dates: start: 20061001, end: 20070101
  2. IRON SULFATETHIAMIN COMPOUND TAB [Concomitant]
  3. FOLIC ACID [Concomitant]
  4. FLAXSEED OIL [Concomitant]
  5. AMBIEN [Concomitant]
  6. MULTI-VITAMINS [Concomitant]
  7. VICODIN [Concomitant]
  8. VITAMIN B COMPLEX CAP [Concomitant]
  9. IBUPROFEN [Concomitant]

REACTIONS (5)
  - PHARYNGITIS [None]
  - DEEP VEIN THROMBOSIS [None]
  - HEADACHE [None]
  - IRON DEFICIENCY ANAEMIA [None]
  - THROMBOPHLEBITIS [None]
